FAERS Safety Report 8611276-9 (Version None)
Quarter: 2012Q3

REPORT INFORMATION
  Report Type: 
  Country: None (occurrence: None)
  Receive Date: 20120822
  Receipt Date: 20120817
  Transmission Date: 20120928
  Serious: Yes (Other)
  Sender: FDA-Public Use
  Company Number: FR-ASTELLAS-2011EU005621

PATIENT
  Sex: Female

DRUGS (2)
  1. PROGRAF [Suspect]
     Dosage: 6.5 MG, UNKNOWN/D
     Route: 065
     Dates: end: 20110828
  2. PROGRAF [Suspect]
     Indication: RENAL TRANSPLANT
     Dosage: UNK MG, UNKNOWN/D
     Route: 065
     Dates: start: 20040601

REACTIONS (2)
  - DIABETIC COMPLICATION [None]
  - IMPAIRED GASTRIC EMPTYING [None]
